FAERS Safety Report 12899872 (Version 3)
Quarter: 2016Q4

REPORT INFORMATION
  Report Type: Spontaneous
  Country: IN (occurrence: IN)
  Receive Date: 20161101
  Receipt Date: 20161118
  Transmission Date: 20170207
  Serious: Yes (Hospitalization)
  Sender: FDA-Public Use
  Company Number: IN-PFIZER INC-2016506328

PATIENT
  Age: 63 Year
  Sex: Male

DRUGS (2)
  1. CARBAMAZEPINE. [Interacting]
     Active Substance: CARBAMAZEPINE
     Indication: SEIZURE
     Dosage: 600 MG, DAILY (IN DIVIDED DOSES)
  2. PHENYTOIN. [Suspect]
     Active Substance: PHENYTOIN
     Indication: SEIZURE
     Dosage: 300 MG, DAILY

REACTIONS (6)
  - Rash maculo-papular [Recovered/Resolved]
  - Face oedema [Unknown]
  - Lip swelling [Unknown]
  - Drug interaction [Recovered/Resolved]
  - Pyrexia [Unknown]
  - Drug cross-reactivity [Recovered/Resolved]
